APPROVED DRUG PRODUCT: BUSPIRONE HYDROCHLORIDE
Active Ingredient: BUSPIRONE HYDROCHLORIDE
Strength: 15MG
Dosage Form/Route: TABLET;ORAL
Application: A074253 | Product #003 | TE Code: AB
Applicant: IMPAX LABORATORIES INC
Approved: Mar 13, 2002 | RLD: No | RS: No | Type: RX